FAERS Safety Report 23559613 (Version 3)
Quarter: 2024Q3

REPORT INFORMATION
  Report Type: Spontaneous
  Country: US (occurrence: US)
  Receive Date: 20240223
  Receipt Date: 20240730
  Transmission Date: 20241017
  Serious: No
  Sender: MYLAN
  Company Number: US-MYLANLABS-2024M1014833

PATIENT
  Sex: Female

DRUGS (2)
  1. TYRVAYA [Suspect]
     Active Substance: VARENICLINE TARTRATE
     Indication: Product used for unknown indication
     Dosage: 0.03 MILLIGRAM
     Route: 045
     Dates: start: 20230210
  2. TYRVAYA [Suspect]
     Active Substance: VARENICLINE TARTRATE
     Dosage: UNK
     Route: 045
     Dates: start: 2024

REACTIONS (7)
  - Eye swelling [Unknown]
  - Ocular hyperaemia [Unknown]
  - Sneezing [Unknown]
  - Cough [Unknown]
  - Expired product administered [Unknown]
  - Product use complaint [Unknown]
  - Device delivery system issue [Unknown]

NARRATIVE: CASE EVENT DATE: 20240101
